FAERS Safety Report 8287147-7 (Version None)
Quarter: 2012Q2

REPORT INFORMATION
  Report Type: 
  Country: None (occurrence: None)
  Receive Date: 20120416
  Receipt Date: 20120412
  Transmission Date: 20120825
  Serious: No
  Sender: FDA-Public Use
  Company Number: US-PFIZER INC-2012092120

PATIENT
  Sex: Female
  Weight: 81.633 kg

DRUGS (11)
  1. ESTRING [Suspect]
     Indication: VULVOVAGINAL BURNING SENSATION
  2. LEVOTHYROXINE [Concomitant]
     Indication: HYPOTHYROIDISM
     Dosage: 75 UG, UNK
  3. LOVAZA [Concomitant]
     Dosage: 1 G, UNK
  4. VITAMIN D [Concomitant]
     Dosage: 50000 UNITS, WEEKLY
  5. ACETYLSALICYLIC ACID [Concomitant]
     Dosage: 81 MG, UNK
  6. PROZAC [Concomitant]
     Indication: DEPRESSION
     Dosage: 20 MG, 3X/DAY
  7. ESTRING [Suspect]
     Indication: DISCOMFORT
     Dosage: 2 MG, UNK
     Route: 067
     Dates: start: 20110630
  8. PROTONIX [Concomitant]
     Indication: GASTROOESOPHAGEAL REFLUX DISEASE
     Dosage: 40 MG, UNK
  9. CALCIUM [Concomitant]
     Dosage: 648 MG, UNK
  10. ESTRING [Suspect]
     Indication: VULVOVAGINAL DRYNESS
  11. ZOCOR [Concomitant]
     Indication: BLOOD CHOLESTEROL INCREASED
     Dosage: 40 MG, UNK

REACTIONS (3)
  - VULVOVAGINAL MYCOTIC INFECTION [None]
  - VULVOVAGINAL BURNING SENSATION [None]
  - VULVOVAGINAL DISCOMFORT [None]
